FAERS Safety Report 19820728 (Version 1)
Quarter: 2021Q3

REPORT INFORMATION
  Report Type: Spontaneous
  Country: US (occurrence: US)
  Receive Date: 20210910
  Receipt Date: 20210910
  Transmission Date: 20211014
  Serious: Yes (Death)
  Sender: FDA-Public Use
  Company Number: None

PATIENT
  Age: 79 Year
  Sex: Male

DRUGS (1)
  1. TOBRAMYCIN (56AMPS/28DAY) 300MG/5ML LUPIN PHARMACEUTICALS [Suspect]
     Active Substance: TOBRAMYCIN
     Indication: BRONCHIECTASIS
     Dosage: ?          OTHER FREQUENCY:BID X 30DAYS ON/OF;OTHER ROUTE:INHALATION?
     Route: 055
     Dates: start: 202107

REACTIONS (1)
  - Death [None]

NARRATIVE: CASE EVENT DATE: 20210904
